FAERS Safety Report 13838985 (Version 1)
Quarter: 2017Q3

REPORT INFORMATION
  Report Type: Spontaneous
  Country: PL (occurrence: PL)
  Receive Date: 20170807
  Receipt Date: 20170807
  Transmission Date: 20171127
  Serious: Yes (Other)
  Sender: FDA-Public Use
  Company Number: PL-SUN PHARMACEUTICAL INDUSTRIES LTD-2017RR-146913

PATIENT
  Age: 15 Year
  Sex: Male

DRUGS (10)
  1. FLUTICASONE. [Suspect]
     Active Substance: FLUTICASONE
     Indication: CHRONIC SINUSITIS
     Dosage: UNK
     Route: 045
  2. IBUPROPHEN [Concomitant]
     Active Substance: IBUPROFEN
     Indication: CHRONIC SINUSITIS
     Dosage: UNK
     Route: 065
  3. FLUNARIZINE [Concomitant]
     Active Substance: FLUNARIZINE
     Dosage: 10 MG, DAILY
     Route: 065
  4. PARACETAMOL, CAFFEINE, CODEINE [Concomitant]
     Indication: HEADACHE
     Route: 065
  5. GABAPENTIN. [Suspect]
     Active Substance: GABAPENTIN
     Indication: CHRONIC SINUSITIS
     Dosage: 1200 MG/DAY FOR 3 DAYS, THEN GRADUAL REDUCTION
     Route: 065
  6. DEXAMETHASONE. [Concomitant]
     Active Substance: DEXAMETHASONE
     Indication: CHRONIC SINUSITIS
     Dosage: UNK
     Route: 042
  7. PARACETAMOL [Suspect]
     Active Substance: ACETAMINOPHEN
     Indication: CHRONIC SINUSITIS
     Dosage: UNK
     Route: 065
  8. DESLORATADINE. [Suspect]
     Active Substance: DESLORATADINE
     Indication: CHRONIC SINUSITIS
     Dosage: UNK
     Route: 048
  9. AZELASTINE [Suspect]
     Active Substance: AZELASTINE
     Indication: CHRONIC SINUSITIS
     Dosage: UNK
     Route: 065
  10. FLUNARIZINE [Concomitant]
     Active Substance: FLUNARIZINE
     Indication: CHRONIC SINUSITIS
     Dosage: 5 MG, DAILY
     Route: 065

REACTIONS (2)
  - Off label use [Unknown]
  - Drug ineffective [Unknown]
